FAERS Safety Report 9335209 (Version 3)
Quarter: 2013Q3

REPORT INFORMATION
  Report Type: Spontaneous
  Country: BE (occurrence: BE)
  Receive Date: 20130606
  Receipt Date: 20130708
  Transmission Date: 20140515
  Serious: Yes (Other)
  Sender: FDA-Public Use
  Company Number: BE-GLAXOSMITHKLINE-B0897367A

PATIENT
  Age: 31 Year
  Sex: Male
  Weight: 73 kg

DRUGS (5)
  1. SERETIDE (50MCG/250MCG) [Suspect]
     Indication: ASTHMA
     Route: 055
     Dates: start: 2007, end: 20130120
  2. NORVIR [Suspect]
     Indication: HIV INFECTION
     Dosage: 100MG PER DAY
     Route: 048
     Dates: start: 20100602
  3. PREZISTA [Concomitant]
     Indication: HIV INFECTION
     Dosage: 800MG PER DAY
     Route: 065
     Dates: start: 20110708
  4. TRUVADA [Concomitant]
     Indication: HIV INFECTION
     Dosage: 1TAB PER DAY
     Route: 048
     Dates: start: 20081203
  5. NORVIR [Concomitant]
     Indication: HIV INFECTION
     Dosage: 100MG PER DAY
     Route: 065
     Dates: start: 20100602

REACTIONS (10)
  - Cushing^s syndrome [Recovered/Resolved]
  - Adrenal insufficiency [Recovered/Resolved]
  - Cushingoid [Unknown]
  - Central obesity [Unknown]
  - Blood cortisol abnormal [Unknown]
  - Drug interaction [Unknown]
  - Fatigue [Recovered/Resolved]
  - Swelling face [Recovered/Resolved]
  - Abdominal distension [Recovered/Resolved]
  - Eyelid oedema [Unknown]
